FAERS Safety Report 9290393 (Version 4)
Quarter: 2014Q1

REPORT INFORMATION
  Report Type: Spontaneous
  Country: US (occurrence: US)
  Receive Date: 20130515
  Receipt Date: 20140304
  Transmission Date: 20141002
  Serious: Yes (Hospitalization, Other)
  Sender: FDA-Public Use
  Company Number: US-PFIZER INC-2013096663

PATIENT
  Age: 54 Year
  Sex: Female
  Weight: 70.3 kg

DRUGS (8)
  1. LYRICA [Suspect]
     Indication: FIBROMYALGIA
     Dosage: 200 MG, 2X/DAY
     Route: 048
     Dates: start: 2003
  2. LYRICA [Suspect]
     Indication: HERPES ZOSTER
     Dosage: 200 MG, 2X/DAY
     Route: 048
     Dates: start: 20130401
  3. LYRICA [Suspect]
     Dosage: 100 MG, 3X/DAY
     Route: 048
  4. NEURONTIN [Suspect]
     Indication: FIBROMYALGIA
     Dosage: UNK
  5. GABAPENTIN [Suspect]
     Indication: FIBROMYALGIA
     Dosage: 300 MG, 3X/DAY
     Dates: end: 20130401
  6. LISINOPRIL W/HYDROCHLOROTHIAZIDE [Concomitant]
     Indication: HYPERTENSION
     Dosage: 20/12.5MG, 2X/DAY
  7. COREG [Concomitant]
     Indication: HYPERTENSION
     Dosage: 6.25 MG, 2X/DAY
  8. NORVASC [Concomitant]
     Indication: HYPERTENSION
     Dosage: 5 MG, 2X/DAY

REACTIONS (23)
  - Mastitis [Unknown]
  - Breast neoplasm [Recovered/Resolved]
  - Breast neoplasm [Recovered/Resolved]
  - Breast mass [Unknown]
  - Ovarian disorder [Unknown]
  - Neuropathy peripheral [Unknown]
  - Herpes zoster [Recovered/Resolved]
  - Breast pain [Not Recovered/Not Resolved]
  - Pain in extremity [Unknown]
  - Nasopharyngitis [Unknown]
  - Malaise [Unknown]
  - Dysuria [Unknown]
  - Breast disorder [Unknown]
  - Middle insomnia [Unknown]
  - Insomnia [Unknown]
  - Herpes zoster [Unknown]
  - Pain [Unknown]
  - Bladder spasm [Unknown]
  - Scar [Unknown]
  - Soft tissue disorder [Unknown]
  - Immune system disorder [Unknown]
  - Blister [Unknown]
  - Breast pain [Unknown]
